FAERS Safety Report 19866063 (Version 4)
Quarter: 2021Q4

REPORT INFORMATION
  Report Type: Report from Study
  Country: DE (occurrence: DE)
  Receive Date: 20210921
  Receipt Date: 20211008
  Transmission Date: 20220304
  Serious: Yes (Other)
  Sender: FDA-Public Use
  Company Number: DE-002147023-PHHY2019DE219432

PATIENT
  Sex: Female
  Weight: 68 kg

DRUGS (6)
  1. LETROZOLE [Suspect]
     Active Substance: LETROZOLE
     Indication: Breast cancer metastatic
     Dosage: 2.5 MILLIGRAM, QD
     Route: 048
     Dates: start: 20190818, end: 20190917
  2. LETROZOLE [Suspect]
     Active Substance: LETROZOLE
     Dosage: UNK
  3. KISQALI [Suspect]
     Active Substance: RIBOCICLIB
     Indication: Breast cancer metastatic
     Dosage: 600 MILLIGRAM, CYCLE, 600 MG, QD)
     Route: 048
     Dates: start: 20190820, end: 20190917
  4. IBRANCE [Suspect]
     Active Substance: PALBOCICLIB
     Indication: Product used for unknown indication
     Dosage: 125 MILLIGRAM
     Route: 048
     Dates: start: 20200817, end: 20201206
  5. IBRANCE [Suspect]
     Active Substance: PALBOCICLIB
     Dosage: 100 MILLIGRAM
     Route: 048
     Dates: start: 20201207, end: 20210405
  6. IBRANCE [Suspect]
     Active Substance: PALBOCICLIB
     Dosage: 75 MILLIGRAM
     Route: 048
     Dates: start: 20210406

REACTIONS (10)
  - Thrombocytopenia [Not Recovered/Not Resolved]
  - Leukopenia [Recovered/Resolved]
  - Neutropenia [Not Recovered/Not Resolved]
  - Defaecation urgency [Recovered/Resolved]
  - Dry eye [Recovered/Resolved]
  - Gastrointestinal pain [Not Recovered/Not Resolved]
  - Mucosal inflammation [Not Recovered/Not Resolved]
  - Dry mouth [Recovered/Resolved]
  - Nausea [Recovered/Resolved]
  - Bone pain [Not Recovered/Not Resolved]

NARRATIVE: CASE EVENT DATE: 20190825
